FAERS Safety Report 6931031-5 (Version None)
Quarter: 2010Q3

REPORT INFORMATION
  Report Type: 
  Country: None (occurrence: None)
  Receive Date: 20100818
  Receipt Date: 20100809
  Transmission Date: 20110219
  Serious: Yes (Hospitalization)
  Sender: FDA-Public Use
  Company Number: IT-WATSON-2010-10733

PATIENT
  Sex: Female

DRUGS (2)
  1. TRELSTAR (WATSON LABORATORIES) [Suspect]
     Indication: BREAST CANCER
     Dosage: 3.75 MG/MON
     Route: 030
     Dates: start: 20061116, end: 20100421
  2. TAMOXIFEN CITRATE [Suspect]
     Indication: BREAST CANCER
     Dosage: UNK
     Route: 065
     Dates: start: 20070515

REACTIONS (2)
  - OVARIAN CYST [None]
  - SALPINGO-OOPHORECTOMY BILATERAL [None]
